FAERS Safety Report 6467460-6 (Version None)
Quarter: 2009Q4

REPORT INFORMATION
  Report Type: 
  Country: None (occurrence: None)
  Receive Date: 20091202
  Receipt Date: 20091123
  Transmission Date: 20100525
  Serious: Yes (Hospitalization)
  Sender: FDA-Public Use
  Company Number: GXKR2009JP12735

PATIENT
  Age: 36 Year
  Sex: Male

DRUGS (1)
  1. WARFARIN (NGX) [Suspect]
     Indication: ANTICOAGULANT THERAPY
     Route: 065

REACTIONS (10)
  - ABDOMINAL PAIN UPPER [None]
  - BACILLUS INFECTION [None]
  - HEADACHE [None]
  - PYREXIA [None]
  - SHOCK [None]
  - SPLENECTOMY [None]
  - SPLENIC ARTERY ANEURYSM [None]
  - SPLENIC HAEMATOMA [None]
  - SPLENIC INFARCTION [None]
  - SPLENIC RUPTURE [None]
